FAERS Safety Report 6563538-7 (Version None)
Quarter: 2010Q1

REPORT INFORMATION
  Report Type: 
  Country: None (occurrence: None)
  Receive Date: 20100130
  Receipt Date: 20091221
  Transmission Date: 20100710
  Serious: Yes (Other)
  Sender: FDA-Public Use
  Company Number: US-ABBOTT-09P-163-0615958-00

PATIENT
  Sex: Male

DRUGS (2)
  1. HUMIRA [Suspect]
     Indication: PSORIASIS
     Dates: start: 20081101, end: 20090401
  2. HUMIRA [Suspect]
     Dates: start: 20090101, end: 20090901

REACTIONS (3)
  - ABDOMINAL PAIN [None]
  - COUGH [None]
  - HODGKIN'S DISEASE [None]
